FAERS Safety Report 24855289 (Version 1)
Quarter: 2025Q1

REPORT INFORMATION
  Report Type: Spontaneous
  Country: DE (occurrence: DE)
  Receive Date: 20250117
  Receipt Date: 20250117
  Transmission Date: 20250409
  Serious: Yes (Hospitalization, Other)
  Sender: ABBVIE
  Company Number: None

PATIENT
  Age: 90 Year
  Sex: Female
  Weight: 59.8 kg

DRUGS (18)
  1. IMBRUVICA [Suspect]
     Active Substance: IBRUTINIB
     Indication: T-cell lymphoma
     Dosage: 3-0-0-0 TREATMENT FOR 2 YEARS
     Route: 048
     Dates: end: 20241114
  2. LEVOTHYROXINE SODIUM [Concomitant]
     Active Substance: LEVOTHYROXINE SODIUM
     Indication: Product used for unknown indication
     Dosage: 1
     Route: 065
     Dates: start: 20241030
  3. RAMIPRIL [Concomitant]
     Active Substance: RAMIPRIL
     Indication: Product used for unknown indication
     Route: 065
     Dates: start: 20241028
  4. RAMIPRIL [Concomitant]
     Active Substance: RAMIPRIL
     Indication: Product used for unknown indication
     Dosage: 1-0-1-0
     Route: 065
     Dates: start: 20241029, end: 20241104
  5. RAMIPRIL [Concomitant]
     Active Substance: RAMIPRIL
     Indication: Product used for unknown indication
     Route: 065
     Dates: start: 20241105, end: 20241105
  6. Jonosteril (Calcium acetate; Magnesium acetate tetrahydrate; Potass... [Concomitant]
     Indication: Product used for unknown indication
     Dosage: 1-0-0
     Route: 065
     Dates: start: 20241105
  7. Betahistine (Betahistine hydrochloride) [Concomitant]
     Indication: Product used for unknown indication
  8. POTASSIUM CHLORIDE [Concomitant]
     Active Substance: POTASSIUM CHLORIDE
     Indication: Product used for unknown indication
     Route: 065
     Dates: start: 20241104
  9. POTASSIUM CHLORIDE [Concomitant]
     Active Substance: POTASSIUM CHLORIDE
     Indication: Product used for unknown indication
     Dosage: 2024, 2-2-2-0?LAST ADMINISTRATION DATE NOV 2024
     Route: 065
     Dates: start: 20241105
  10. POTASSIUM CHLORIDE [Concomitant]
     Active Substance: POTASSIUM CHLORIDE
     Indication: Product used for unknown indication
     Dosage: 2-0-2-0
     Route: 065
     Dates: start: 20241106
  11. PYLERA [Concomitant]
     Active Substance: BISMUTH SUBCITRATE POTASSIUM\METRONIDAZOLE\TETRACYCLINE HYDROCHLORIDE
     Indication: Product used for unknown indication
     Dosage: 3-3-3
     Route: 065
  12. PYLERA [Concomitant]
     Active Substance: BISMUTH SUBCITRATE POTASSIUM\METRONIDAZOLE\TETRACYCLINE HYDROCHLORIDE
     Indication: Product used for unknown indication
     Dosage: 3-3-3-3
     Route: 065
     Dates: start: 20241029
  13. Kalinor (Citric acid; Potassium bicarbonate; Potassium citrate) [Concomitant]
     Indication: Product used for unknown indication
     Route: 065
     Dates: start: 20241104
  14. Kalinor (Citric acid; Potassium bicarbonate; Potassium citrate) [Concomitant]
     Indication: Product used for unknown indication
     Route: 065
     Dates: start: 20241029
  15. MIRTAZAPINE [Concomitant]
     Active Substance: MIRTAZAPINE
     Indication: Product used for unknown indication
     Dosage: 0-0-1/2-0
     Route: 065
     Dates: start: 20241031
  16. PANTOPRAZOLE [Concomitant]
     Active Substance: PANTOPRAZOLE
     Indication: Product used for unknown indication
     Dosage: 0-1-0
     Route: 065
     Dates: start: 20241028, end: 20241028
  17. PANTOPRAZOLE [Concomitant]
     Active Substance: PANTOPRAZOLE
     Indication: Product used for unknown indication
     Dosage: 1-0-1-0
     Route: 065
     Dates: start: 20241029
  18. TORSEMIDE [Concomitant]
     Active Substance: TORSEMIDE
     Indication: Product used for unknown indication
     Dosage: 1-0-0-0
     Route: 065
     Dates: start: 20241029

REACTIONS (7)
  - Respiratory failure [Not Recovered/Not Resolved]
  - Atrial fibrillation [Not Recovered/Not Resolved]
  - Pleural effusion [Not Recovered/Not Resolved]
  - Dyspnoea [Not Recovered/Not Resolved]
  - Cardiac failure [Not Recovered/Not Resolved]
  - Atrial fibrillation [Not Recovered/Not Resolved]
  - Transient ischaemic attack [Not Recovered/Not Resolved]

NARRATIVE: CASE EVENT DATE: 20241101
